FAERS Safety Report 9846585 (Version 3)
Quarter: 2014Q4

REPORT INFORMATION
  Report Type: Spontaneous
  Country: US (occurrence: US)
  Receive Date: 20140127
  Receipt Date: 20141114
  Transmission Date: 20150529
  Serious: Yes (Death, Life-Threatening, Hospitalization, Other)
  Sender: FDA-Public Use
  Company Number: US-GLAXOSMITHKLINE-A1058107A

PATIENT
  Age: 83 Year
  Sex: Female
  Weight: 60.5 kg

DRUGS (14)
  1. ASPIRIN. [Concomitant]
     Active Substance: ASPIRIN
  2. FLUTICASONE [Concomitant]
     Active Substance: FLUTICASONE\FLUTICASONE PROPIONATE
  3. MELPHALAN [Suspect]
     Active Substance: MELPHALAN
     Indication: PLASMA CELL MYELOMA
     Dosage: 20 MG, Z
     Route: 048
     Dates: start: 20131116, end: 20131205
  4. CARDIZEM [Concomitant]
     Active Substance: DILTIAZEM HYDROCHLORIDE
  5. PHENAZOPYRIDINE. [Concomitant]
     Active Substance: PHENAZOPYRIDINE
  6. DARVOCET-N 100 [Concomitant]
     Active Substance: ACETAMINOPHEN\PROPOXYPHENE NAPSYLATE
  7. PREDNISONE. [Suspect]
     Active Substance: PREDNISONE
     Indication: PLASMA CELL MYELOMA
     Dosage: 40 MG, Z
     Route: 048
     Dates: start: 20131116, end: 20131205
  8. CALCIUM + VITAMIN D [Concomitant]
     Active Substance: CALCIUM\VITAMIN D
  9. KETOROLAC [Concomitant]
     Active Substance: KETOROLAC\KETOROLAC TROMETHAMINE
  10. PENLAC [Concomitant]
     Active Substance: CICLOPIROX
  11. LISINOPRIL. [Concomitant]
     Active Substance: LISINOPRIL
  12. GABAPENTIN. [Concomitant]
     Active Substance: GABAPENTIN
  13. METOPROLOL [Concomitant]
     Active Substance: METOPROLOL
  14. BACTRIM DS [Concomitant]
     Active Substance: SULFAMETHOXAZOLE\TRIMETHOPRIM

REACTIONS (9)
  - Platelet transfusion [Unknown]
  - Disseminated intravascular coagulation [Fatal]
  - Malaise [Unknown]
  - Haematemesis [Unknown]
  - Tooth infection [Unknown]
  - Pancytopenia [Unknown]
  - Haemoptysis [Unknown]
  - Packed red blood cell transfusion [Unknown]
  - Blood culture positive [Unknown]

NARRATIVE: CASE EVENT DATE: 20131205
